FAERS Safety Report 7183261-8 (Version None)
Quarter: 2010Q4

REPORT INFORMATION
  Report Type: 
  Country: None (occurrence: None)
  Receive Date: 20101222
  Receipt Date: 20100611
  Transmission Date: 20110411
  Serious: No
  Sender: FDA-Public Use
  Company Number: A0859482A

PATIENT
  Age: 15 Year
  Sex: Male

DRUGS (1)
  1. FLONASE [Suspect]
     Route: 045

REACTIONS (10)
  - BALANCE DISORDER [None]
  - BINOCULAR EYE MOVEMENT DISORDER [None]
  - BLEPHAROSPASM [None]
  - EYE MOVEMENT DISORDER [None]
  - LETHARGY [None]
  - MYDRIASIS [None]
  - NYSTAGMUS [None]
  - OCULAR HYPERAEMIA [None]
  - PUPILLARY REFLEX IMPAIRED [None]
  - SOMNOLENCE [None]
